FAERS Safety Report 9902672 (Version 1)
Quarter: 2014Q1

REPORT INFORMATION
  Report Type: Spontaneous
  Country: US (occurrence: US)
  Receive Date: 20140217
  Receipt Date: 20140217
  Transmission Date: 20141002
  Serious: No
  Sender: FDA-Public Use
  Company Number: US-PFIZER INC-2014039781

PATIENT
  Age: 75 Year
  Sex: Female
  Weight: 68 kg

DRUGS (2)
  1. PREMARIN [Suspect]
     Dosage: UNK, 2X/WEEK
     Route: 067
     Dates: start: 20130808
  2. PREMARIN [Suspect]
     Dosage: UNK, 2X/WEEK
     Route: 067
     Dates: start: 201309

REACTIONS (1)
  - Infection [Unknown]
